FAERS Safety Report 5324844-7 (Version None)
Quarter: 2007Q2

REPORT INFORMATION
  Report Type: 
  Country: None (occurrence: None)
  Receive Date: 20070515
  Receipt Date: 20070507
  Transmission Date: 20071010
  Serious: Yes (Other)
  Sender: FDA-Public Use
  Company Number: AU-JNJFOC-20070501690

PATIENT
  Age: 11 Year
  Sex: Male

DRUGS (2)
  1. CONCERTA [Suspect]
     Indication: DRUG USE FOR UNKNOWN INDICATION
     Dosage: PEDIATRICIAN ADVISED PATIENT TO CEASE THERAPY FOR TWO DAYS
     Route: 048
  2. RITALIN [Concomitant]

REACTIONS (2)
  - AGGRESSION [None]
  - DISTURBANCE IN SOCIAL BEHAVIOUR [None]
